FAERS Safety Report 6567068-8 (Version None)
Quarter: 2010Q1

REPORT INFORMATION
  Report Type: 
  Country: None (occurrence: None)
  Receive Date: 20100202
  Receipt Date: 20100121
  Transmission Date: 20100710
  Serious: Yes (Other)
  Sender: FDA-Public Use
  Company Number: JP-PFIZER INC-2010009144

PATIENT
  Sex: Male

DRUGS (5)
  1. ADRIACIN [Suspect]
     Indication: LYMPHOMA
     Dosage: UNK
     Route: 042
  2. PREDNISOLONE AND PREDNISOLONE STEAGLATE [Suspect]
     Indication: LYMPHOMA
     Dosage: UNK
     Route: 048
  3. RITUXAN [Suspect]
     Indication: LYMPHOMA
     Dosage: UNK
     Route: 042
  4. ENDOXAN [Suspect]
     Indication: LYMPHOMA
     Dosage: UNK
  5. ONCOVIN [Suspect]
     Indication: LYMPHOMA
     Dosage: UNK
     Route: 042

REACTIONS (2)
  - DEEP VEIN THROMBOSIS [None]
  - PULMONARY EMBOLISM [None]
